FAERS Safety Report 6250509-3 (Version None)
Quarter: 2009Q2

REPORT INFORMATION
  Report Type: 
  Country: None (occurrence: None)
  Receive Date: 20090630
  Receipt Date: 20090622
  Transmission Date: 20091009
  Serious: Yes (Hospitalization)
  Sender: FDA-Public Use
  Company Number: ES-ROCHE-639791

PATIENT
  Sex: Female
  Weight: 68 kg

DRUGS (3)
  1. CAPECITABINE [Suspect]
     Indication: COLORECTAL CANCER METASTATIC
     Dosage: FREQUENCY REPORTED AS 1-14D Q3W. LAST DOSE PRIOR TO SAE: 25 JUNE 2007
     Route: 048
     Dates: start: 20070504, end: 20070706
  2. BEVACIZUMAB [Suspect]
     Indication: COLORECTAL CANCER METASTATIC
     Dosage: FORM: INFUSION. LAST DOSE PRIOR TO SAE:15 JUNE 2007
     Route: 042
     Dates: start: 20070504, end: 20070706
  3. OXALIPLATIN [Suspect]
     Indication: COLORECTAL CANCER METASTATIC
     Dosage: FORM: INFUSION. LAST DOSE PRIOR TO SAE:15 JUNE 2007
     Route: 042
     Dates: start: 20070504, end: 20070706

REACTIONS (1)
  - GASTROINTESTINAL INFLAMMATION [None]
